FAERS Safety Report 12035156 (Version 1)
Quarter: 2016Q1

REPORT INFORMATION
  Report Type: Report from Study
  Country: US (occurrence: US)
  Receive Date: 20160207
  Receipt Date: 20160207
  Transmission Date: 20160526
  Serious: No
  Sender: FDA-Public Use
  Company Number: US-ABBVIE-15K-163-1522584-00

PATIENT
  Age: 59 Year
  Sex: Female

DRUGS (4)
  1. HUMIRA [Suspect]
     Active Substance: ADALIMUMAB
     Indication: CROHN^S DISEASE
     Dosage: DAY 1
     Route: 058
     Dates: start: 20151016, end: 20151016
  2. HUMIRA [Suspect]
     Active Substance: ADALIMUMAB
     Dosage: DAY 29
     Route: 058
     Dates: start: 20151113, end: 20151113
  3. HUMIRA [Suspect]
     Active Substance: ADALIMUMAB
     Route: 058
     Dates: start: 2015
  4. HUMIRA [Suspect]
     Active Substance: ADALIMUMAB
     Dosage: DAY 15
     Route: 058
     Dates: start: 20151030, end: 20151030

REACTIONS (12)
  - Nasal discharge discolouration [Unknown]
  - Decreased appetite [Unknown]
  - Depressed mood [Unknown]
  - Nausea [Unknown]
  - Sneezing [Unknown]
  - Anxiety [Unknown]
  - Vomiting [Unknown]
  - Diarrhoea [Unknown]
  - Upper-airway cough syndrome [Unknown]
  - Productive cough [Unknown]
  - Weight decreased [Unknown]
  - Fear [Unknown]

NARRATIVE: CASE EVENT DATE: 2015
